FAERS Safety Report 4546484-X (Version None)
Quarter: 2005Q1

REPORT INFORMATION
  Report Type: 
  Country: None (occurrence: None)
  Receive Date: 20050103
  Receipt Date: 20041209
  Transmission Date: 20050727
  Serious: Yes (Hospitalization, Disabling)
  Sender: FDA-Public Use
  Company Number: US_0409106169

PATIENT
  Age: 74 Year
  Sex: Male

DRUGS (6)
  1. CEFACLOR [Suspect]
     Indication: INFECTION PROPHYLAXIS
     Dosage: 500 MG
     Dates: start: 20040913, end: 20040913
  2. MUCOSTA (REBAMIPIDE) [Concomitant]
  3. EXCELASE [Concomitant]
  4. CEFTAZIDIME [Concomitant]
  5. CLINDAMYCIN HYDROCHLORIDE [Concomitant]
  6. MINOCYCLINE HCL [Concomitant]

REACTIONS (15)
  - ALLERGIC OEDEMA [None]
  - BLOOD PRESSURE DIASTOLIC DECREASED [None]
  - CARDIAC FAILURE [None]
  - CHOKING SENSATION [None]
  - DELIRIUM [None]
  - DRUG HYPERSENSITIVITY [None]
  - HAEMATOCRIT DECREASED [None]
  - HAEMOGLOBIN DECREASED [None]
  - INTERSTITIAL LUNG DISEASE [None]
  - PLATELET COUNT DECREASED [None]
  - PLEURAL EFFUSION [None]
  - PROTEIN TOTAL DECREASED [None]
  - PULMONARY OEDEMA [None]
  - RED BLOOD CELL COUNT DECREASED [None]
  - SHOCK [None]
